FAERS Safety Report 6039524-2 (Version None)
Quarter: 2009Q1

REPORT INFORMATION
  Report Type: 
  Country: None (occurrence: None)
  Receive Date: 20090116
  Receipt Date: 20090109
  Transmission Date: 20090719
  Serious: Yes (Hospitalization)
  Sender: FDA-Public Use
  Company Number: DE-RANBAXY-2009RR-20438

PATIENT
  Age: 70 Year
  Sex: Male
  Weight: 91.5 kg

DRUGS (15)
  1. ALLOPURINOL [Suspect]
     Indication: HYPERURICAEMIA
     Dosage: 50 MG, QD
     Route: 048
  2. ACETOLYT [Suspect]
     Indication: ACIDOSIS
     Dosage: 2.5 G, QD
     Route: 048
     Dates: end: 20080720
  3. ACETYLSALICYLIC ACID SRT [Suspect]
     Indication: PROPHYLAXIS
     Dosage: 100 MG, QD
     Route: 048
     Dates: start: 20000101
  4. CARVEDILOL [Suspect]
     Indication: HYPERTENSION
     Dosage: 12.5 MG, QD
     Route: 048
  5. DIGITOXIN TAB [Suspect]
     Indication: CARDIAC FAILURE
     Dosage: 0.07 MG, QD
     Dates: start: 20080625, end: 20080720
  6. DIOVANE [Suspect]
     Indication: HYPERTENSION
     Dosage: 160 MG, QD
     Route: 048
  7. EBRANTIL [Suspect]
     Indication: HYPERTENSION
     Dosage: 60 MG, BID
     Route: 048
  8. EINSALPHA [Suspect]
     Indication: HYPERPARATHYROIDISM
     Dosage: 0.25 UG, QD
     Route: 048
     Dates: start: 20080520
  9. FLUVASTATIN [Suspect]
     Indication: HYPERCHOLESTEROLAEMIA
     Dosage: 20 MG, QD
     Route: 048
  10. PANTOZOL [Suspect]
     Indication: HELICOBACTER GASTRITIS
     Dosage: 40 MG, BID
     Route: 048
  11. PLAVIX [Suspect]
     Indication: PROPHYLAXIS
     Dosage: 75 MG, QD
     Route: 048
     Dates: start: 20060401, end: 20080720
  12. TOREM/GFR [Suspect]
     Indication: HYPERTENSION
     Dosage: 20 MG, TID
     Route: 048
  13. XIPAMIDE [Suspect]
     Indication: HYPERTENSION
     Dosage: 20 MG, QD
     Route: 048
     Dates: start: 20080625
  14. MOXONIDINE [Concomitant]
     Dosage: 0.2 MG, TID
     Route: 048
  15. NEORECORMON ROCHE [Concomitant]
     Indication: ANAEMIA
     Dosage: 4000 IU, UNK
     Route: 058

REACTIONS (2)
  - DRUG INTERACTION [None]
  - GENERAL PHYSICAL CONDITION [None]
